FAERS Safety Report 9126660 (Version 1)
Quarter: 2013Q1

REPORT INFORMATION
  Report Type: Spontaneous
  Country: US (occurrence: US)
  Receive Date: 20130228
  Receipt Date: 20130228
  Transmission Date: 20140127
  Serious: Yes (Death)
  Sender: FDA-Public Use
  Company Number: US-JNJFOC-20130210661

PATIENT
  Age: 45 Year
  Sex: Male
  Weight: 95.26 kg

DRUGS (5)
  1. INVEGA SUSTENNA [Suspect]
     Indication: BIPOLAR I DISORDER
     Route: 030
     Dates: start: 200012
  2. COGENTIN [Concomitant]
     Route: 065
  3. BUSPAR [Concomitant]
     Route: 065
  4. LAMICTAL [Concomitant]
     Route: 065
  5. ABILIFY [Concomitant]
     Route: 065

REACTIONS (1)
  - Cardiac arrest [Fatal]
